FAERS Safety Report 17016924 (Version 1)
Quarter: 2019Q4

REPORT INFORMATION
  Report Type: Report from Study
  Country: US (occurrence: US)
  Receive Date: 20191111
  Receipt Date: 20191111
  Transmission Date: 20200122
  Serious: Yes (Hospitalization)
  Sender: FDA-Public Use
  Company Number: US-EISAI MEDICAL RESEARCH-EC-2019-064129

PATIENT
  Age: 66 Year
  Sex: Male
  Weight: 63 kg

DRUGS (13)
  1. AMLODIPINE BESYLATE. [Concomitant]
     Active Substance: AMLODIPINE BESYLATE
  2. ASPIRIN EC [Concomitant]
     Active Substance: ASPIRIN
  3. LOSARTAN. [Concomitant]
     Active Substance: LOSARTAN
  4. ROSUVASTATIN. [Concomitant]
     Active Substance: ROSUVASTATIN
  5. ADVAIR HFA [Concomitant]
     Active Substance: FLUTICASONE PROPIONATE\SALMETEROL XINAFOATE
  6. LENVIMA [Suspect]
     Active Substance: LENVATINIB
     Indication: SALIVARY GLAND CANCER
  7. PROAIR HFA [Concomitant]
     Active Substance: ALBUTEROL SULFATE
  8. METHYLPREDNISOLONE. [Concomitant]
     Active Substance: METHYLPREDNISOLONE
  9. MULTIVITAMINS [Concomitant]
     Active Substance: VITAMINS
  10. ELIQUIS [Concomitant]
     Active Substance: APIXABAN
  11. LENVIMA [Suspect]
     Active Substance: LENVATINIB
     Indication: ADENOCARCINOMA
     Route: 048
     Dates: start: 20191020, end: 201911
  12. ELIQUIS [Concomitant]
     Active Substance: APIXABAN
  13. SYNTHROID [Concomitant]
     Active Substance: LEVOTHYROXINE SODIUM

REACTIONS (5)
  - Weight decreased [Recovering/Resolving]
  - Decreased appetite [Recovering/Resolving]
  - Blood pressure increased [Unknown]
  - Heart rate increased [Unknown]
  - Infection [Unknown]

NARRATIVE: CASE EVENT DATE: 20191022
